FAERS Safety Report 7769279-2 (Version None)
Quarter: 2011Q3

REPORT INFORMATION
  Report Type: 
  Country: None (occurrence: None)
  Receive Date: 20110922
  Receipt Date: 20110919
  Transmission Date: 20111222
  Serious: No
  Sender: FDA-Public Use
  Company Number: US-PFIZER INC-2010057070

PATIENT
  Sex: Female

DRUGS (3)
  1. PLAVIX [Concomitant]
     Dosage: UNK
  2. PROCARDIA [Suspect]
     Indication: BLOOD PRESSURE ABNORMAL
     Dosage: 60 MG, 1X/DAY
     Route: 048
     Dates: start: 20080101
  3. VASOTEC [Concomitant]
     Dosage: 10 MG, 2X/DAY
     Route: 048

REACTIONS (4)
  - DYSPHONIA [None]
  - HEART RATE INCREASED [None]
  - RASH [None]
  - DYSGEUSIA [None]
